FAERS Safety Report 13192378 (Version 1)
Quarter: 2017Q1

REPORT INFORMATION
  Report Type: Spontaneous
  Country: US (occurrence: US)
  Receive Date: 20170207
  Receipt Date: 20170207
  Transmission Date: 20170428
  Serious: No
  Sender: FDA-Public Use
  Company Number: US-009507513-1701USA011683

PATIENT
  Age: 52 Year
  Sex: Male

DRUGS (11)
  1. TYLENOL [Concomitant]
     Active Substance: ACETAMINOPHEN
  2. QUERCETIN [Concomitant]
     Active Substance: QUERCETIN
  3. KEPPRA [Concomitant]
     Active Substance: LEVETIRACETAM
  4. CIALIS [Concomitant]
     Active Substance: TADALAFIL
  5. CENTRUM (MINERALS (UNSPECIFIED) (+) VITAMINS (UNSPECIFIED)) [Concomitant]
  6. AVASTIN [Concomitant]
     Active Substance: BEVACIZUMAB
  7. TEMODAR [Suspect]
     Active Substance: TEMOZOLOMIDE
     Indication: BRAIN NEOPLASM MALIGNANT
     Dosage: 3X100 MG CAPSULES AND AN ADDITIONAL 180 MG DOSE FOR 5 NIGHTS
     Dates: start: 2013
  8. LISINOPRIL. [Concomitant]
     Active Substance: LISINOPRIL
  9. CELEBREX [Concomitant]
     Active Substance: CELECOXIB
  10. ENOXAPARIN SODIUM. [Concomitant]
     Active Substance: ENOXAPARIN SODIUM
  11. ZOFRAN [Concomitant]
     Active Substance: ONDANSETRON HYDROCHLORIDE

REACTIONS (1)
  - Adverse event [Unknown]
